FAERS Safety Report 17361945 (Version 1)
Quarter: 2020Q1

REPORT INFORMATION
  Report Type: Spontaneous
  Country: US (occurrence: US)
  Receive Date: 20200117
  Receipt Date: 20200117
  Transmission Date: 20200409
  Serious: Yes (Hospitalization, Other)
  Sender: FDA-Public Use
  Company Number: None

PATIENT
  Age: 21 Year
  Sex: Female
  Weight: 72.6 kg

DRUGS (1)
  1. BINIMETINIB 15MG TABLETS [Suspect]
     Active Substance: BINIMETINIB
     Indication: NEUROFIBROMA
     Route: 048
     Dates: start: 20191205, end: 20200114

REACTIONS (3)
  - Anaemia [None]
  - Menorrhagia [None]
  - Palpitations [None]

NARRATIVE: CASE EVENT DATE: 20200115
